FAERS Safety Report 13256568 (Version 2)
Quarter: 2017Q3

REPORT INFORMATION
  Report Type: Spontaneous
  Country: SE (occurrence: SE)
  Receive Date: 20170221
  Receipt Date: 20170929
  Transmission Date: 20171127
  Serious: Yes (Other)
  Sender: FDA-Public Use
  Company Number: SE-MYLANLABS-16X-150-1270554-00

PATIENT
  Age: 47 Year
  Sex: Male

DRUGS (7)
  1. NEXIUM I.V. [Suspect]
     Active Substance: ESOMEPRAZOLE SODIUM
     Dosage: 20 MG, QD
     Dates: end: 201610
  2. MIRTAZAPIN [Concomitant]
     Active Substance: MIRTAZAPINE
     Indication: PRODUCT USED FOR UNKNOWN INDICATION
     Dosage: 1 DF, QD
  3. NEXIUM HP [Suspect]
     Active Substance: AMOXICILLIN\CLARITHROMYCIN\ESOMEPRAZOLE
  4. KLACID (CLARITHROMYCIN) [Suspect]
     Active Substance: CLARITHROMYCIN
     Indication: HELICOBACTER INFECTION
     Dosage: 1 DF, BID
     Route: 065
     Dates: start: 20160902, end: 201610
  5. PROMETHAZINE [Concomitant]
     Active Substance: PROMETHAZINE\PROMETHAZINE HYDROCHLORIDE
     Indication: PRODUCT USED FOR UNKNOWN INDICATION
     Dosage: 1 DF, PRN
  6. NEXIUM I.V. [Suspect]
     Active Substance: ESOMEPRAZOLE SODIUM
     Indication: HELICOBACTER INFECTION
     Dosage: 1 DF, BID
     Route: 065
     Dates: start: 20160902
  7. AMIMOX [Suspect]
     Active Substance: AMOXICILLIN
     Indication: HELICOBACTER INFECTION
     Dosage: 2 DF, BID
     Route: 065
     Dates: start: 20160902, end: 201610

REACTIONS (5)
  - Arthralgia [Unknown]
  - Musculoskeletal pain [Unknown]
  - Haemorrhoids [Unknown]
  - Diverticulitis [Unknown]
  - Headache [Unknown]

NARRATIVE: CASE EVENT DATE: 201610
